FAERS Safety Report 21151365 (Version 1)
Quarter: 2022Q3

REPORT INFORMATION
  Report Type: Spontaneous
  Country: AT (occurrence: AT)
  Receive Date: 20220730
  Receipt Date: 20220730
  Transmission Date: 20221026
  Serious: Yes (Hospitalization)
  Sender: FDA-Public Use
  Company Number: AT-NOVARTISPH-NVSC2022AT168125

PATIENT
  Age: 45 Year
  Sex: Female
  Weight: 65 kg

DRUGS (36)
  1. CAPECITABINE [Suspect]
     Active Substance: CAPECITABINE
     Indication: HER2 positive breast cancer
     Dosage: 2000 MG, QD (2 TIMES PER DAY)
     Route: 048
     Dates: start: 20200715, end: 202109
  2. PACLITAXEL [Suspect]
     Active Substance: PACLITAXEL
     Indication: HER2 positive breast cancer
     Dosage: 138.1 MG/KG, QW (1 TIME PER WEEK)
     Route: 042
     Dates: start: 20181017, end: 20200226
  3. LAPATINIB [Suspect]
     Active Substance: LAPATINIB
     Indication: HER2 positive breast cancer
     Dosage: 1250 MG, QD (1 TIME PER DAY)
     Route: 048
     Dates: start: 20200715, end: 20210804
  4. DENOSUMAB [Suspect]
     Active Substance: DENOSUMAB
     Indication: HER2 positive breast cancer
     Dosage: 120 MG/KG, Q4W (1 TIME PER 4 WEEKS)
     Route: 058
     Dates: start: 20190326
  5. TRASTUZUMAB [Suspect]
     Active Substance: TRASTUZUMAB
     Indication: HER2 positive breast cancer
     Dosage: 6 MG/KG, TIW (1 TIME PER 3 WEEKS)
     Route: 065
     Dates: start: 20181016, end: 20200226
  6. VINORELBINE [Suspect]
     Active Substance: VINORELBINE TARTRATE
     Indication: HER2 positive breast cancer
     Dosage: 30 MG/M2 (DAY1 PLUS DAY8 FROM 28 DAYS  )
     Route: 040
     Dates: start: 20210927
  7. PERTUZUMAB [Suspect]
     Active Substance: PERTUZUMAB
     Indication: HER2 positive breast cancer
     Dosage: 420 MG, TIW (1 TIME PER 3 WEEKS)
     Route: 041
     Dates: start: 20181016, end: 20200226
  8. ADO-TRASTUZUMAB EMTANSINE [Suspect]
     Active Substance: ADO-TRASTUZUMAB EMTANSINE
     Indication: HER2 positive breast cancer
     Dosage: 3.6 MG/KG, TIW (1 TIME PER 3 WEEKS)
     Route: 040
     Dates: start: 20200227, end: 20200703
  9. POLYETHYLENE GLYCOL 3350\POTASSIUM CHLORIDE\SODIUM BICARBONATE\SODIUM [Concomitant]
     Active Substance: POLYETHYLENE GLYCOL 3350\POTASSIUM CHLORIDE\SODIUM BICARBONATE\SODIUM CHLORIDE
     Indication: Product used for unknown indication
     Dosage: 13.8 G, QD (ONCE DAILY)
     Route: 048
     Dates: start: 20181023
  10. LACTULOSE [Concomitant]
     Active Substance: LACTULOSE
     Indication: Product used for unknown indication
     Dosage: 1 UNK, PRN
     Route: 048
     Dates: start: 20200826
  11. SELEXID [Concomitant]
     Indication: Product used for unknown indication
     Dosage: 200 MG, QD (3 TIMES PER DAY)
     Route: 048
     Dates: start: 20191016, end: 20191020
  12. HYDROMORPHONE HYDROCHLORIDE [Concomitant]
     Active Substance: HYDROMORPHONE HYDROCHLORIDE
     Indication: Product used for unknown indication
     Dosage: 8 MG
     Route: 048
     Dates: start: 20200826, end: 20200917
  13. HYDROMORPHONE HYDROCHLORIDE [Concomitant]
     Active Substance: HYDROMORPHONE HYDROCHLORIDE
     Dosage: 2.6 MG
     Route: 048
     Dates: start: 20200826, end: 20200917
  14. HYDROMORPHONE HYDROCHLORIDE [Concomitant]
     Active Substance: HYDROMORPHONE HYDROCHLORIDE
     Dosage: 1.3 MG (ONCE AS NECESSARY)
     Route: 048
     Dates: start: 20211027
  15. DEXAMETHASONE [Concomitant]
     Active Substance: DEXAMETHASONE
     Indication: Product used for unknown indication
     Dosage: UNK
     Route: 065
     Dates: start: 20211105
  16. RANITIDINE HYDROCHLORIDE [Concomitant]
     Active Substance: RANITIDINE HYDROCHLORIDE
     Indication: Product used for unknown indication
     Dosage: 50 MG, QW (1 TIME PER WEEK)
     Route: 040
     Dates: start: 20181017, end: 20200703
  17. EMEND [Concomitant]
     Active Substance: APREPITANT
     Indication: Product used for unknown indication
     Dosage: 125 MG, QW (1 TIME PER WEEK)
     Route: 048
     Dates: start: 20181120, end: 20200703
  18. ZOFRAN [Concomitant]
     Active Substance: ONDANSETRON HYDROCHLORIDE
     Indication: Product used for unknown indication
     Dosage: 8 MG, QW (1 TIME PER WEEK)
     Route: 041
     Dates: start: 20181017, end: 20200703
  19. ASTEC [Concomitant]
     Indication: Product used for unknown indication
     Dosage: 35 UG (ONCE EVERY 3 DAYS)
     Route: 062
     Dates: start: 20181023
  20. ZOFRAN ZYDIS LINGUAL [Concomitant]
     Indication: Product used for unknown indication
     Dosage: 4 MG (1-0-1)
     Route: 060
     Dates: start: 20181023
  21. BETAMETHASONE DIPROPIONATE [Concomitant]
     Active Substance: BETAMETHASONE DIPROPIONATE
     Indication: Product used for unknown indication
     Dosage: 60 MG
     Route: 040
     Dates: start: 20200703
  22. BETAMETHASONE DIPROPIONATE [Concomitant]
     Active Substance: BETAMETHASONE DIPROPIONATE
     Dosage: UNK, QD
     Route: 065
     Dates: start: 20190108, end: 20190114
  23. CAPSAICIN [Concomitant]
     Active Substance: CAPSAICIN
     Indication: Product used for unknown indication
     Dosage: 0.03 %
     Route: 061
     Dates: start: 20200826, end: 20200917
  24. FUCIDIN [Concomitant]
     Active Substance: FUSIDATE SODIUM
     Indication: Product used for unknown indication
     Dosage: 250 MG, QD (3 TIMES PER DAY)
     Route: 048
     Dates: start: 20181113, end: 20181120
  25. CLINDAMYCIN [Concomitant]
     Active Substance: CLINDAMYCIN
     Indication: Product used for unknown indication
     Dosage: 300 MG (2-2-2)
     Route: 048
     Dates: start: 20181113, end: 20181119
  26. BANEOCIN [Concomitant]
     Indication: Product used for unknown indication
     Dosage: UNK (ONCE DAILY)
     Route: 061
     Dates: start: 20190108, end: 20190114
  27. PANTOPRAZOLE SODIUM [Concomitant]
     Active Substance: PANTOPRAZOLE SODIUM
     Indication: Product used for unknown indication
     Dosage: UNK
     Route: 065
  28. BUPRENORPHINE HYDROCHLORIDE [Concomitant]
     Active Substance: BUPRENORPHINE HYDROCHLORIDE
     Indication: Product used for unknown indication
     Dosage: 0.2 MG (1 TIME AS NECESSARY)
     Route: 060
     Dates: start: 20181023
  29. DIPHENHYDRAMINE HYDROCHLORIDE [Concomitant]
     Active Substance: DIPHENHYDRAMINE HYDROCHLORIDE
     Indication: Product used for unknown indication
     Dosage: 60 MG, QW (1 TIME PER WEEK)
     Route: 040
     Dates: start: 20200703
  30. PASPERTIN [Concomitant]
     Indication: Product used for unknown indication
     Dosage: 10 MG (1-1-1)
     Route: 048
     Dates: start: 20181023
  31. NEURONTIN [Concomitant]
     Active Substance: GABAPENTIN
     Indication: Product used for unknown indication
     Dosage: UNK
     Route: 065
     Dates: start: 20211027
  32. AMOXICILLIN AND CLAVULANATE POTASSIUM [Concomitant]
     Active Substance: AMOXICILLIN\CLAVULANATE POTASSIUM
     Indication: Product used for unknown indication
     Dosage: 1 G, QD (2 TIMES PER DAY)
     Route: 048
     Dates: start: 20190926, end: 20191005
  33. PARACODIN [Concomitant]
     Indication: Product used for unknown indication
     Dosage: 20 DRP (20-20-20)
     Route: 048
     Dates: start: 20180715
  34. METAMIZOLE [Concomitant]
     Active Substance: METAMIZOLE
     Indication: Product used for unknown indication
     Dosage: 500 MG (2-2-2)
     Route: 048
     Dates: start: 20181023
  35. LEVETIRACETAM [Concomitant]
     Active Substance: LEVETIRACETAM
     Indication: Product used for unknown indication
     Dosage: 100 MG (1-0-1)
     Route: 048
     Dates: start: 20211125
  36. CANDESARTAN [Concomitant]
     Active Substance: CANDESARTAN
     Indication: Product used for unknown indication
     Dosage: UNK
     Route: 065

REACTIONS (1)
  - Cerebral vasoconstriction [Recovering/Resolving]

NARRATIVE: CASE EVENT DATE: 20211025
